FAERS Safety Report 16736547 (Version 2)
Quarter: 2019Q3

REPORT INFORMATION
  Report Type: Spontaneous
  Country: US (occurrence: US)
  Receive Date: 20190823
  Receipt Date: 20190828
  Transmission Date: 20191005
  Serious: Yes (Hospitalization)
  Sender: FDA-Public Use
  Company Number: US-PFIZER INC-2019361205

PATIENT
  Age: 77 Year
  Sex: Male

DRUGS (5)
  1. PHENFORMIN [Interacting]
     Active Substance: PHENFORMIN
     Indication: DIABETES MELLITUS
     Dosage: 50 MG, DAILY (TIME-DISINTEGRATED CAPSULE EVERY MORNING)
     Dates: start: 1971
  2. CHLORPROPAMIDE. [Interacting]
     Active Substance: CHLORPROPAMIDE
     Dosage: 250 MG, 2X/DAY
     Dates: start: 197107
  3. SULFISOXAZOLE [Interacting]
     Active Substance: SULFISOXAZOLE
     Dosage: 1 G, 4X/DAY (8 G)
     Dates: start: 19711020
  4. CHLORPROPAMIDE. [Suspect]
     Active Substance: CHLORPROPAMIDE
     Indication: DIABETES MELLITUS
     Dosage: 250 MG, DAILY
     Dates: start: 1971
  5. SULFISOXAZOLE [Interacting]
     Active Substance: SULFISOXAZOLE
     Indication: URINARY TRACT INFECTION
     Dosage: 4 G, DAILY
     Dates: start: 1971

REACTIONS (2)
  - Hypoglycaemia [Recovered/Resolved]
  - Drug interaction [Unknown]

NARRATIVE: CASE EVENT DATE: 1971
